FAERS Safety Report 9175912 (Version 2)
Quarter: 2013Q2

REPORT INFORMATION
  Report Type: Spontaneous
  Country: US (occurrence: US)
  Receive Date: 20130320
  Receipt Date: 20130404
  Transmission Date: 20140414
  Serious: No
  Sender: FDA-Public Use
  Company Number: US-009507513-1303USA007685

PATIENT
  Age: 60 Year
  Sex: Female
  Weight: 72.56 kg

DRUGS (1)
  1. MIRALAX [Suspect]
     Indication: CONSTIPATION
     Dosage: UNK, ONCE
     Route: 048
     Dates: start: 20130319

REACTIONS (3)
  - Oesophageal pain [Unknown]
  - Vomiting [Recovered/Resolved]
  - Retching [Unknown]
